FAERS Safety Report 7461801-9 (Version None)
Quarter: 2011Q2

REPORT INFORMATION
  Report Type: 
  Country: None (occurrence: None)
  Receive Date: 20110506
  Receipt Date: 20110502
  Transmission Date: 20111010
  Serious: Yes (Death, Life-Threatening, Hospitalization)
  Sender: FDA-Public Use
  Company Number: DE-ELI_LILLY_AND_COMPANY-10-11-00141

PATIENT
  Sex: Male
  Weight: 52 kg

DRUGS (17)
  1. DICLOFENAC [Concomitant]
     Indication: PAIN
     Dates: start: 19960101
  2. POVIDONE IODINE [Concomitant]
     Indication: ERYTHEMA MULTIFORME
     Dates: start: 20100626, end: 20100629
  3. MACROGOL [Concomitant]
     Indication: CONSTIPATION
     Dates: start: 20100620, end: 20100627
  4. TRAMADOL [Concomitant]
     Indication: PAIN
     Dates: start: 20100616
  5. CISPLATIN [Suspect]
     Indication: NON-SMALL CELL LUNG CANCER
     Dosage: 120 MG, UNK
     Route: 042
     Dates: start: 20100617
  6. STRUCTOKABIVEN                     /05981101/ [Concomitant]
     Indication: PARENTERAL NUTRITION
     Route: 042
     Dates: start: 20100628, end: 20100629
  7. LOPERAMIDE [Concomitant]
     Indication: DIARRHOEA
     Route: 042
     Dates: start: 20100627, end: 20100628
  8. ATARAX [Concomitant]
     Indication: PRURITUS
     Dosage: UNK, UNK
     Dates: start: 19760101
  9. AMPHOTERICIN B [Concomitant]
     Indication: STOMATITIS
     Dates: start: 20100511
  10. MORPHIN                            /00036303/ [Concomitant]
     Indication: PAIN
     Route: 042
     Dates: start: 20100618
  11. AREDIA [Concomitant]
     Indication: PSORIATIC ARTHROPATHY
     Dates: start: 20100618, end: 20100618
  12. NALOXON [Concomitant]
     Indication: PAIN
     Dates: start: 20100620, end: 20100620
  13. CERNEVIT-12 [Concomitant]
     Indication: VITAMIN SUPPLEMENTATION
     Dates: start: 20100628, end: 20100629
  14. GEMCITABINE HYDROCHLORIDE [Suspect]
     Indication: NON-SMALL CELL LUNG CANCER
     Dosage: 2000 MG, UNK
     Route: 042
     Dates: start: 20100617
  15. PSORCUTAN [Concomitant]
     Indication: PSORIATIC ARTHROPATHY
     Dosage: UNK, UNK
     Dates: start: 19760101
  16. METAMIZOLE [Concomitant]
     Indication: PAIN
     Route: 042
     Dates: start: 20100511
  17. METHOTREXAT [Concomitant]
     Indication: PSORIATIC ARTHROPATHY
     Dates: start: 20100622

REACTIONS (3)
  - GENERAL PHYSICAL HEALTH DETERIORATION [None]
  - SEPSIS [None]
  - LEUKOPENIA [None]
